FAERS Safety Report 19447501 (Version 1)
Quarter: 2021Q2

REPORT INFORMATION
  Report Type: Spontaneous
  Country: US (occurrence: US)
  Receive Date: 20210621
  Receipt Date: 20210621
  Transmission Date: 20210717
  Serious: Yes (Hospitalization)
  Sender: FDA-Public Use
  Company Number: None

PATIENT
  Sex: Female

DRUGS (10)
  1. LEVOTHYROXINE 75 MCG TAB [Concomitant]
     Active Substance: LEVOTHYROXINE
  2. CENTRUM TAB [Concomitant]
  3. ONDANSETRON 8 MG TAB [Concomitant]
  4. INDAPAMIDE 1.25 MG TAB [Concomitant]
  5. PERCOCET 7.5 MG TAB [Concomitant]
  6. FISH OIL 300 [Concomitant]
  7. LOSARTAN25 MG TAB [Concomitant]
  8. VITAMIN D3 AND B12 [Concomitant]
  9. CAPECITABINE 500 MG TAB [Suspect]
     Active Substance: CAPECITABINE
     Indication: ANAL CANCER
     Route: 048
  10. METOCLOPRAMIDE 10 MG TAB [Concomitant]

REACTIONS (6)
  - Diarrhoea [None]
  - Erythema [None]
  - Blister [None]
  - Proctitis [None]
  - Pain in extremity [None]
  - Adverse drug reaction [None]
